FAERS Safety Report 8095174-8 (Version None)
Quarter: 2012Q1

REPORT INFORMATION
  Report Type: 
  Country: None (occurrence: None)
  Receive Date: 20120126
  Receipt Date: 20120110
  Transmission Date: 20120608
  Serious: Yes (Other)
  Sender: FDA-Public Use
  Company Number: 2012-0143

PATIENT
  Sex: Female

DRUGS (1)
  1. DYSPORT [Suspect]
     Indication: PRODUCT USED FOR UNKNOWN INDICATION
     Dosage: (SINGLE CYCLE),INTRAMUSCULAR
     Route: 030

REACTIONS (1)
  - MACULAR OEDEMA [None]
